FAERS Safety Report 23765460 (Version 3)
Quarter: 2024Q3

REPORT INFORMATION
  Report Type: Report from Study
  Country: US (occurrence: US)
  Receive Date: 20240420
  Receipt Date: 20240714
  Transmission Date: 20241017
  Serious: Yes (Hospitalization, Other)
  Sender: ABBVIE
  Company Number: US-ABBVIE-5582696

PATIENT
  Age: 57 Year
  Sex: Female

DRUGS (1)
  1. RINVOQ [Suspect]
     Active Substance: UPADACITINIB
     Indication: Psoriatic arthropathy
     Route: 048

REACTIONS (7)
  - Diverticulitis [Recovering/Resolving]
  - Psoriasis [Not Recovered/Not Resolved]
  - Pharyngitis [Recovered/Resolved]
  - Psoriatic arthropathy [Not Recovered/Not Resolved]
  - Arthropathy [Unknown]
  - Drug ineffective [Not Recovered/Not Resolved]
  - Abdominal discomfort [Not Recovered/Not Resolved]

NARRATIVE: CASE EVENT DATE: 20230701
